FAERS Safety Report 15315333 (Version 1)
Quarter: 2018Q3

REPORT INFORMATION
  Report Type: Spontaneous
  Country: ES (occurrence: ES)
  Receive Date: 20180824
  Receipt Date: 20180824
  Transmission Date: 20181010
  Serious: Yes (Hospitalization, Other)
  Sender: FDA-Public Use
  Company Number: ES-AUROBINDO-AUR-APL-2018-043404

PATIENT
  Age: 14 Year
  Sex: Female

DRUGS (7)
  1. RISPERIDONE. [Suspect]
     Active Substance: RISPERIDONE
     Indication: ABNORMAL BEHAVIOUR
  2. LEXATIN                            /00424801/ [Suspect]
     Active Substance: BROMAZEPAM
     Indication: ABNORMAL BEHAVIOUR
  3. RISPERIDONE. [Suspect]
     Active Substance: RISPERIDONE
     Indication: HALLUCINATION
     Dosage: UNK
     Route: 065
  4. LEXATIN                            /00424801/ [Suspect]
     Active Substance: BROMAZEPAM
     Indication: EATING DISORDER
  5. SERTRALINE [Suspect]
     Active Substance: SERTRALINE HYDROCHLORIDE
     Indication: ABNORMAL BEHAVIOUR
  6. RISPERIDONE. [Suspect]
     Active Substance: RISPERIDONE
     Indication: EATING DISORDER
  7. SERTRALINE [Suspect]
     Active Substance: SERTRALINE HYDROCHLORIDE
     Indication: EATING DISORDER

REACTIONS (7)
  - Hospitalisation [Unknown]
  - Hallucination [Unknown]
  - Syncope [Unknown]
  - Depression [Unknown]
  - Tobacco user [Unknown]
  - Treatment noncompliance [Unknown]
  - Aggression [Unknown]
